FAERS Safety Report 15346822 (Version 1)
Quarter: 2018Q3

REPORT INFORMATION
  Report Type: Spontaneous
  Country: US (occurrence: US)
  Receive Date: 20180828
  Receipt Date: 20180828
  Transmission Date: 20181010
  Serious: No
  Sender: FDA-Public Use
  Company Number: None

PATIENT
  Age: 37 Year
  Sex: Female

DRUGS (1)
  1. BOTOX [Suspect]
     Active Substance: ONABOTULINUMTOXINA
     Indication: MIGRAINE WITHOUT AURA
     Route: 030

REACTIONS (3)
  - Dermatitis acneiform [None]
  - Eyelid ptosis [None]
  - Brow ptosis [None]

NARRATIVE: CASE EVENT DATE: 20180827
